FAERS Safety Report 10564088 (Version 1)
Quarter: 2014Q4

REPORT INFORMATION
  Report Type: Spontaneous
  Country: US (occurrence: US)
  Receive Date: 20141104
  Receipt Date: 20141104
  Transmission Date: 20150529
  Serious: No
  Sender: FDA-Public Use
  Company Number: US-BAYER-2014-161539

PATIENT
  Age: 59 Year
  Sex: Female
  Weight: 70.3 kg

DRUGS (2)
  1. RID 1-2-3 SYSTEM [Suspect]
     Active Substance: PIPERONYL BUTOXIDE\PYRETHRUM EXTRACT
     Indication: PROPHYLAXIS
     Dosage: UNK
     Route: 061
     Dates: start: 2008
  2. ALEVE [Suspect]
     Active Substance: NAPROXEN SODIUM
     Indication: ARTHRITIS
     Dosage: UNK

REACTIONS (5)
  - Hypoaesthesia oral [Recovered/Resolved]
  - Wrong technique in drug usage process [None]
  - Drug ineffective [None]
  - Intentional product misuse [None]
  - Vision blurred [Recovered/Resolved]

NARRATIVE: CASE EVENT DATE: 20141027
